FAERS Safety Report 8052970-0 (Version None)
Quarter: 2012Q1

REPORT INFORMATION
  Report Type: 
  Country: None (occurrence: None)
  Receive Date: 20120118
  Receipt Date: 20120110
  Transmission Date: 20120608
  Serious: Yes (Hospitalization)
  Sender: FDA-Public Use
  Company Number: US-US-EMD SERONO, INC.-7095513

PATIENT
  Sex: Male
  Weight: 113 kg

DRUGS (4)
  1. REBIF [Suspect]
  2. LITHIUM CARBONATE [Concomitant]
     Indication: BECKER'S MUSCULAR DYSTROPHY
  3. LYRICA [Concomitant]
     Indication: PAIN
  4. REBIF [Suspect]
     Indication: MULTIPLE SCLEROSIS
     Dates: start: 20110913, end: 20111001

REACTIONS (2)
  - PNEUMONIA [None]
  - INJECTION SITE MASS [None]
